FAERS Safety Report 10411739 (Version 1)
Quarter: 2014Q3

REPORT INFORMATION
  Report Type: Spontaneous
  Country: US (occurrence: None)
  Receive Date: 20140826
  Receipt Date: 20140826
  Transmission Date: 20150326
  Serious: No
  Sender: FDA-Public Use
  Company Number: None

PATIENT
  Age: 54 Year
  Sex: Male
  Weight: 65.77 kg

DRUGS (8)
  1. PLAVIX [Concomitant]
     Active Substance: CLOPIDOGREL BISULFATE
  2. COLACE [Concomitant]
     Active Substance: DOCUSATE SODIUM
  3. NTG [Concomitant]
     Active Substance: NITROGLYCERIN
  4. ASA [Concomitant]
     Active Substance: ASPIRIN
  5. SIMVASTATIN. [Concomitant]
     Active Substance: SIMVASTATIN
  6. ATENOLOL. [Concomitant]
     Active Substance: ATENOLOL
  7. HCTZ [Concomitant]
     Active Substance: HYDROCHLOROTHIAZIDE
  8. DEFINITY [Suspect]
     Active Substance: PERFLUTREN
     Indication: ULTRASOUND SCAN
     Dosage: FOR PROCEDURE
     Route: 042
     Dates: start: 20140821, end: 20140821

REACTIONS (1)
  - Back pain [None]

NARRATIVE: CASE EVENT DATE: 20140821
